FAERS Safety Report 12662566 (Version 2)
Quarter: 2016Q3

REPORT INFORMATION
  Report Type: Spontaneous
  Country: AU (occurrence: AU)
  Receive Date: 20160818
  Receipt Date: 20160923
  Transmission Date: 20161109
  Serious: Yes (Other)
  Sender: FDA-Public Use
  Company Number: AU-BRISTOL-MYERS SQUIBB COMPANY-BMS-2016-066783

PATIENT
  Sex: Female

DRUGS (1)
  1. OPDIVO [Suspect]
     Active Substance: NIVOLUMAB
     Indication: ADRENAL GLAND CANCER
     Dosage: 180 MG, UNK
     Route: 042
     Dates: start: 20150828, end: 20151023

REACTIONS (2)
  - Myositis [Recovered/Resolved]
  - Rheumatoid arthritis [Recovered/Resolved]
